FAERS Safety Report 6178322-6 (Version None)
Quarter: 2009Q2

REPORT INFORMATION
  Report Type: 
  Country: None (occurrence: None)
  Receive Date: 20090504
  Receipt Date: 20090423
  Transmission Date: 20091009
  Serious: Yes (Hospitalization)
  Sender: FDA-Public Use
  Company Number: US-NOVOPROD-286491

PATIENT
  Age: 78 Year
  Sex: Male

DRUGS (4)
  1. LEVEMIR [Suspect]
     Indication: INSULIN-REQUIRING TYPE 2 DIABETES MELLITUS
     Dosage: 42 IU IN THE A.M., 40 IU AT NIGHT
     Route: 058
     Dates: start: 20070101, end: 20090414
  2. LEVEMIR [Suspect]
     Dosage: 32 IU, BID
     Route: 058
     Dates: start: 20090423
  3. NOVOLOG MIX 70/30 [Suspect]
     Indication: INSULIN-REQUIRING TYPE 2 DIABETES MELLITUS
     Route: 058
     Dates: start: 20070101, end: 20090414
  4. LISINOPRIL [Concomitant]
     Indication: DRUG USE FOR UNKNOWN INDICATION
     Dates: end: 20090414

REACTIONS (5)
  - ABASIA [None]
  - BLOOD GLUCOSE FLUCTUATION [None]
  - COLLAPSE OF LUNG [None]
  - ELECTROLYTE DEPLETION [None]
  - PNEUMONIA [None]
